FAERS Safety Report 24394662 (Version 10)
Quarter: 2025Q4

REPORT INFORMATION
  Report Type: Report from Study
  Country: CN (occurrence: CN)
  Receive Date: 20241004
  Receipt Date: 20251218
  Transmission Date: 20260118
  Serious: Yes (Hospitalization, Other)
  Sender: ROCHE
  Company Number: CN-ROCHE-10000093516

PATIENT
  Age: 67 Year
  Sex: Male
  Weight: 75 kg

DRUGS (77)
  1. POLATUZUMAB VEDOTIN [Suspect]
     Active Substance: POLATUZUMAB VEDOTIN
     Indication: Diffuse large B-cell lymphoma
     Dosage: THERAPY START DATE AND END DATE 08-AUG-2024
     Route: 041
     Dates: start: 20240808, end: 20240808
  2. POLATUZUMAB VEDOTIN [Suspect]
     Active Substance: POLATUZUMAB VEDOTIN
     Route: 041
     Dates: start: 20240627, end: 20240627
  3. POLATUZUMAB VEDOTIN [Suspect]
     Active Substance: POLATUZUMAB VEDOTIN
     Route: 041
     Dates: start: 20240830, end: 20240830
  4. POLATUZUMAB VEDOTIN [Suspect]
     Active Substance: POLATUZUMAB VEDOTIN
     Route: 041
     Dates: start: 20241010, end: 20241010
  5. ZUBERITAMAB [Suspect]
     Active Substance: ZUBERITAMAB
     Indication: Diffuse large B-cell lymphoma
     Route: 041
     Dates: end: 20240808
  6. ZUBERITAMAB [Suspect]
     Active Substance: ZUBERITAMAB
     Route: 041
     Dates: end: 20240831
  7. ZUBERITAMAB [Suspect]
     Active Substance: ZUBERITAMAB
     Route: 041
     Dates: end: 20241010
  8. DOXORUBICIN [Suspect]
     Active Substance: DOXORUBICIN
     Indication: Diffuse large B-cell lymphoma
     Dosage: THERAPY START DATE AND END DATE 09-AUG-2024?SUBSEQUENT DOSE ON 11-OCT-2024
     Route: 041
     Dates: end: 20240702
  9. DOXORUBICIN [Suspect]
     Active Substance: DOXORUBICIN
     Route: 041
     Dates: start: 20240901, end: 20240903
  10. DOXORUBICIN [Suspect]
     Active Substance: DOXORUBICIN
     Route: 041
     Dates: start: 20241011, end: 20241013
  11. DEXAMETHASONE SODIUM PHOSPHATE [Suspect]
     Active Substance: DEXAMETHASONE SODIUM PHOSPHATE
     Indication: Diffuse large B-cell lymphoma
     Route: 041
  12. DEXAMETHASONE SODIUM PHOSPHATE [Suspect]
     Active Substance: DEXAMETHASONE SODIUM PHOSPHATE
     Dosage: 01-SEP-2024
     Route: 041
     Dates: end: 20240905
  13. DEXAMETHASONE SODIUM PHOSPHATE [Suspect]
     Active Substance: DEXAMETHASONE SODIUM PHOSPHATE
     Route: 041
     Dates: end: 20241015
  14. RITUXIMAB [Suspect]
     Active Substance: RITUXIMAB
     Indication: Diffuse large B-cell lymphoma
     Dosage: ROUTE OF ADMIN: CONTINUOUS INTRAVENOUS PUMPING.
     Route: 042
     Dates: start: 20240628, end: 20240628
  15. RITUXIMAB [Suspect]
     Active Substance: RITUXIMAB
     Route: 041
     Dates: start: 20241010, end: 20241010
  16. RITUXIMAB [Suspect]
     Active Substance: RITUXIMAB
     Route: 042
     Dates: start: 20240718, end: 20240718
  17. RITUXIMAB [Suspect]
     Active Substance: RITUXIMAB
     Route: 041
     Dates: start: 20240831, end: 20240831
  18. PREDNISONE [Suspect]
     Active Substance: PREDNISONE
     Indication: Diffuse large B-cell lymphoma
     Route: 041
     Dates: start: 20240624, end: 20240629
  19. PREDNISONE [Suspect]
     Active Substance: PREDNISONE
     Route: 041
     Dates: start: 20240629, end: 20240704
  20. PREDNISONE [Suspect]
     Active Substance: PREDNISONE
     Route: 041
     Dates: start: 20240704, end: 20240704
  21. CYCLOPHOSPHAMIDE [Suspect]
     Active Substance: CYCLOPHOSPHAMIDE
     Indication: Diffuse large B-cell lymphoma
     Route: 041
     Dates: start: 20240809, end: 20240809
  22. CYCLOPHOSPHAMIDE [Suspect]
     Active Substance: CYCLOPHOSPHAMIDE
     Route: 041
     Dates: start: 20241011, end: 20241011
  23. CYCLOPHOSPHAMIDE [Suspect]
     Active Substance: CYCLOPHOSPHAMIDE
     Route: 041
     Dates: start: 20240901, end: 20240901
  24. CYCLOPHOSPHAMIDE [Suspect]
     Active Substance: CYCLOPHOSPHAMIDE
     Route: 041
     Dates: start: 20240629, end: 20240629
  25. PREDNISOLONE [Suspect]
     Active Substance: PREDNISOLONE
     Indication: Diffuse large B-cell lymphoma
     Route: 041
     Dates: start: 20240629, end: 20240704
  26. PREDNISOLONE [Suspect]
     Active Substance: PREDNISOLONE
     Route: 041
     Dates: start: 20240624, end: 20240629
  27. CASPOFUNGIN ACETATE [Concomitant]
     Active Substance: CASPOFUNGIN ACETATE
     Indication: Diffuse large B-cell lymphoma
     Dosage: DOSE RECEIVED ON : 15-SEP-2024
     Route: 041
  28. CASPOFUNGIN ACETATE [Concomitant]
     Active Substance: CASPOFUNGIN ACETATE
     Dosage: SUBSEQUENT DOSE ON 07-NOV-2024, 19-SEP-2024
     Route: 041
  29. BACILLUS LICHENIFORMIS GRANULES, LIVE [Concomitant]
     Indication: Diffuse large B-cell lymphoma
  30. CLOSTRIDIUM BUTYRICUM CAPSULES, LIVE [Concomitant]
     Indication: Diffuse large B-cell lymphoma
     Dosage: SUBSEQUENT DOSE ON 13-SEP-2024 AND END DATE 23-SEP-2024
     Route: 048
  31. MOXIFLOXACIN HYDROCHLORIDE [Concomitant]
     Active Substance: MOXIFLOXACIN HYDROCHLORIDE
     Indication: Diffuse large B-cell lymphoma
     Dosage: START DATE: 15-SEP-2024, END DATE: 23-SEP-2024
     Route: 041
  32. MOXIFLOXACIN HYDROCHLORIDE [Concomitant]
     Active Substance: MOXIFLOXACIN HYDROCHLORIDE
     Dosage: SUBSEQUENT DOSE ON 19-SEP-2024
     Route: 041
  33. injection liquid of gentamicin [Concomitant]
     Indication: Diffuse large B-cell lymphoma
     Dosage: DOSE: 80000 U ON 12-SEP-2024
     Route: 048
  34. CEFOPERAZONE SODIUM\SULBACTAM SODIUM [Concomitant]
     Active Substance: CEFOPERAZONE SODIUM\SULBACTAM SODIUM
     Indication: Diffuse large B-cell lymphoma
  35. HUMAN IMMUNOGLOBULIN G [Concomitant]
     Active Substance: HUMAN IMMUNOGLOBULIN G
     Route: 041
     Dates: start: 20241030, end: 20241103
  36. ESOMEPRAZOLE MAGNESIUM [Concomitant]
     Active Substance: ESOMEPRAZOLE MAGNESIUM
     Route: 048
     Dates: start: 20240809, end: 20240813
  37. ESOMEPRAZOLE MAGNESIUM [Concomitant]
     Active Substance: ESOMEPRAZOLE MAGNESIUM
     Route: 048
     Dates: start: 20240830, end: 20240830
  38. ESOMEPRAZOLE MAGNESIUM [Concomitant]
     Active Substance: ESOMEPRAZOLE MAGNESIUM
     Route: 048
     Dates: start: 20240624, end: 20240704
  39. ESOMEPRAZOLE MAGNESIUM [Concomitant]
     Active Substance: ESOMEPRAZOLE MAGNESIUM
     Route: 048
     Dates: start: 20241012, end: 20241015
  40. ESOMEPRAZOLE MAGNESIUM [Concomitant]
     Active Substance: ESOMEPRAZOLE MAGNESIUM
     Route: 048
     Dates: start: 20241119, end: 20241122
  41. ESOMEPRAZOLE MAGNESIUM [Concomitant]
     Active Substance: ESOMEPRAZOLE MAGNESIUM
     Route: 048
     Dates: start: 20240915, end: 20240919
  42. CLOPIDOGREL BISULFATE [Concomitant]
     Active Substance: CLOPIDOGREL BISULFATE
     Route: 048
     Dates: start: 20240624, end: 20240704
  43. CLOPIDOGREL BISULFATE [Concomitant]
     Active Substance: CLOPIDOGREL BISULFATE
     Route: 048
     Dates: start: 20241107, end: 20241122
  44. Ondansetron hydrochloride inj [Concomitant]
     Route: 042
     Dates: start: 20240901, end: 20240902
  45. Ondansetron hydrochloride inj [Concomitant]
     Route: 042
     Dates: start: 20240902, end: 20240902
  46. Ondansetron hydrochloride inj [Concomitant]
     Route: 042
     Dates: start: 20240629, end: 20240701
  47. Ondansetron hydrochloride inj [Concomitant]
     Route: 042
     Dates: start: 20241011, end: 20241013
  48. Dolasetron mesylate inj [Concomitant]
     Route: 041
     Dates: start: 20240809, end: 20240811
  49. Dolasetron mesylate inj [Concomitant]
     Route: 041
     Dates: start: 20240701, end: 20240702
  50. DIPHENHYDRAMINE HYDROCHLORIDE [Concomitant]
     Active Substance: DIPHENHYDRAMINE HYDROCHLORIDE
     Dosage: ONLY ONCE
     Route: 030
  51. DIPHENHYDRAMINE HYDROCHLORIDE [Concomitant]
     Active Substance: DIPHENHYDRAMINE HYDROCHLORIDE
     Route: 030
     Dates: start: 20240808, end: 20240808
  52. DIPHENHYDRAMINE HYDROCHLORIDE [Concomitant]
     Active Substance: DIPHENHYDRAMINE HYDROCHLORIDE
     Dosage: ONLY ONCE
     Route: 030
  53. DIPHENHYDRAMINE HYDROCHLORIDE [Concomitant]
     Active Substance: DIPHENHYDRAMINE HYDROCHLORIDE
     Dosage: ONLY ONCE
     Route: 030
     Dates: start: 20241010, end: 20241010
  54. DIPHENHYDRAMINE HYDROCHLORIDE [Concomitant]
     Active Substance: DIPHENHYDRAMINE HYDROCHLORIDE
     Dosage: ONLY ONCE
     Route: 030
     Dates: start: 20240628, end: 20240628
  55. POTASSIUM CHLORIDE [Concomitant]
     Active Substance: POTASSIUM CHLORIDE
     Dosage: SUBSEQUENT DOSE RECEIVED ON 11-SEP-2024
     Route: 041
     Dates: start: 20240831, end: 20240831
  56. POTASSIUM CHLORIDE [Concomitant]
     Active Substance: POTASSIUM CHLORIDE
     Route: 041
     Dates: start: 20240830, end: 20240830
  57. POTASSIUM CHLORIDE [Concomitant]
     Active Substance: POTASSIUM CHLORIDE
     Route: 041
     Dates: start: 20240911, end: 20240916
  58. RIVAROXABAN [Concomitant]
     Active Substance: RIVAROXABAN
     Route: 048
     Dates: start: 20240922, end: 20240923
  59. RIVAROXABAN [Concomitant]
     Active Substance: RIVAROXABAN
     Route: 048
     Dates: start: 20241107, end: 20241122
  60. RIVAROXABAN [Concomitant]
     Active Substance: RIVAROXABAN
     Route: 048
     Dates: start: 20240624, end: 20240704
  61. VITAMINS [Concomitant]
     Active Substance: VITAMINS
     Route: 041
     Dates: start: 20241011, end: 20241015
  62. FUROSEMIDE [Concomitant]
     Active Substance: FUROSEMIDE
     Route: 041
     Dates: start: 20241031, end: 20241104
  63. OMEPRAZOLE SODIUM [Concomitant]
     Active Substance: OMEPRAZOLE SODIUM
     Route: 041
     Dates: start: 20241030, end: 20241106
  64. Esazolam [Concomitant]
     Dosage: EVERY NIGHT
     Route: 048
     Dates: start: 20241107, end: 20241121
  65. relapsed sulfamethoxazole tablets [Concomitant]
     Route: 048
     Dates: start: 20241111, end: 20241122
  66. Pegylated recombinant human granulocyte stimulating factor injection [Concomitant]
     Indication: Prophylaxis
     Route: 058
     Dates: start: 20240813, end: 20240813
  67. Pegylated recombinant human granulocyte stimulating factor injection [Concomitant]
     Route: 058
  68. Piperacillin tazobactam sodium for inj [Concomitant]
     Indication: Adverse event
     Route: 041
     Dates: start: 20241106
  69. HEPARIN SODIUM [Concomitant]
     Active Substance: HEPARIN SODIUM
     Indication: Adverse event
     Route: 058
     Dates: start: 20241114, end: 20241121
  70. DEXAMETHASONE SODIUM PHOSPHATE [Concomitant]
     Active Substance: DEXAMETHASONE SODIUM PHOSPHATE
  71. METHYLPREDNISOLONE SODIUM SUCCINATE [Concomitant]
     Active Substance: METHYLPREDNISOLONE SODIUM SUCCINATE
     Indication: Adverse event
     Route: 041
     Dates: start: 20240915, end: 20240919
  72. METHYLPREDNISOLONE SODIUM SUCCINATE [Concomitant]
     Active Substance: METHYLPREDNISOLONE SODIUM SUCCINATE
     Route: 041
     Dates: start: 20240919, end: 20240923
  73. METHYLPREDNISOLONE SODIUM SUCCINATE [Concomitant]
     Active Substance: METHYLPREDNISOLONE SODIUM SUCCINATE
     Route: 041
     Dates: start: 20241030, end: 20241108
  74. METHYLPREDNISOLONE SODIUM SUCCINATE [Concomitant]
     Active Substance: METHYLPREDNISOLONE SODIUM SUCCINATE
     Dosage: 08-NOV-2024
     Route: 041
     Dates: start: 20241108, end: 20241119
  75. METHYLPREDNISOLONE SODIUM SUCCINATE [Concomitant]
     Active Substance: METHYLPREDNISOLONE SODIUM SUCCINATE
     Route: 041
     Dates: start: 20241119, end: 20241122
  76. METHYLPREDNISOLONE SODIUM SUCCINATE [Concomitant]
     Active Substance: METHYLPREDNISOLONE SODIUM SUCCINATE
     Route: 041
     Dates: start: 20241107, end: 20241107
  77. METHYLPREDNISOLONE SODIUM SUCCINATE [Concomitant]
     Active Substance: METHYLPREDNISOLONE SODIUM SUCCINATE
     Route: 041
     Dates: start: 20241030, end: 20241030

REACTIONS (3)
  - Pneumonia [Recovered/Resolved]
  - Gastroenteritis [Recovered/Resolved]
  - Nausea [Recovered/Resolved]

NARRATIVE: CASE EVENT DATE: 20240629
